FAERS Safety Report 7406676-9 (Version None)
Quarter: 2011Q2

REPORT INFORMATION
  Report Type: 
  Country: None (occurrence: None)
  Receive Date: 20110411
  Receipt Date: 20110405
  Transmission Date: 20111010
  Serious: Yes (Other)
  Sender: FDA-Public Use
  Company Number: KR-PFIZER INC-2011074544

PATIENT
  Age: 56 Year
  Sex: Male

DRUGS (1)
  1. CELEBREX [Suspect]
     Indication: ARTHRITIS
     Dosage: 200 MG, 1X/DAY
     Route: 048
     Dates: start: 20110311, end: 20110328

REACTIONS (5)
  - DIARRHOEA [None]
  - PARAESTHESIA [None]
  - HAEMATOCHEZIA [None]
  - GINGIVAL BLEEDING [None]
  - GINGIVAL SWELLING [None]
